FAERS Safety Report 4282720-5 (Version None)
Quarter: 2004Q1

REPORT INFORMATION
  Report Type: 
  Country: None (occurrence: None)
  Receive Date: 20040130
  Receipt Date: 20030403
  Transmission Date: 20041129
  Serious: No
  Sender: FDA-Public Use
  Company Number: US-BRISTOL-MYERS SQUIBB COMPANY-12230199

PATIENT
  Age: 56 Year
  Sex: Female
  Weight: 88 kg

DRUGS (6)
  1. SERZONE [Suspect]
     Indication: POST-TRAUMATIC STRESS DISORDER
     Dosage: AT NIGHT
     Route: 048
     Dates: start: 20030328
  2. PRILOSEC [Concomitant]
  3. SYNTHROID [Concomitant]
  4. ATIVAN [Concomitant]
  5. PREMARIN [Concomitant]
  6. LIPITOR [Concomitant]

REACTIONS (4)
  - DYSPHASIA [None]
  - EYE SWELLING [None]
  - PRURITUS [None]
  - SLUGGISHNESS [None]
